FAERS Safety Report 8446929-9 (Version None)
Quarter: 2012Q2

REPORT INFORMATION
  Report Type: 
  Country: None (occurrence: None)
  Receive Date: 20120613
  Receipt Date: 20120613
  Transmission Date: 20120825
  Serious: Yes (Other)
  Sender: FDA-Public Use
  Company Number: None

PATIENT
  Sex: Male
  Weight: 66.2252 kg

DRUGS (1)
  1. LEVAQUIN [Suspect]
     Indication: LOCALISED INFECTION
     Dosage: ONCE A DAY
     Dates: start: 20120604, end: 20120606

REACTIONS (3)
  - GAIT DISTURBANCE [None]
  - POOR QUALITY SLEEP [None]
  - PAIN IN EXTREMITY [None]
